FAERS Safety Report 20848957 (Version 2)
Quarter: 2022Q2

REPORT INFORMATION
  Report Type: Spontaneous
  Country: US (occurrence: US)
  Receive Date: 20220519
  Receipt Date: 20220608
  Transmission Date: 20220721
  Serious: No
  Sender: FDA-Public Use
  Company Number: US-BRISTOL-MYERS SQUIBB COMPANY-2022-020031

PATIENT
  Age: 86 Year
  Sex: Female
  Weight: 53.07 kg

DRUGS (1)
  1. REVLIMID [Suspect]
     Active Substance: LENALIDOMIDE
     Indication: Monoclonal gammopathy
     Dosage: 20 MILLIGRAM, FREQ:- 2W, 1W OFF
     Route: 048

REACTIONS (3)
  - Vision blurred [Recovering/Resolving]
  - Intentional product use issue [Unknown]
  - Migraine [Recovering/Resolving]
